FAERS Safety Report 5291316-8 (Version None)
Quarter: 2007Q2

REPORT INFORMATION
  Report Type: 
  Country: None (occurrence: None)
  Receive Date: 20070409
  Receipt Date: 20070404
  Transmission Date: 20071010
  Serious: Yes (Other)
  Sender: FDA-Public Use
  Company Number: BR-PFIZER INC-2007027340

PATIENT
  Sex: Female

DRUGS (1)
  1. FELDENE [Suspect]
     Indication: ABDOMINAL PAIN
     Route: 048

REACTIONS (3)
  - HYPERSENSITIVITY [None]
  - PHOTOSENSITIVITY REACTION [None]
  - THERMAL BURN [None]
